FAERS Safety Report 5076418-3 (Version None)
Quarter: 2006Q3

REPORT INFORMATION
  Report Type: 
  Country: None (occurrence: None)
  Receive Date: 20060727
  Receipt Date: 20050802
  Transmission Date: 20061208
  Serious: Yes (Other)
  Sender: FDA-Public Use
  Company Number: 8010908

PATIENT
  Age: 10 Year
  Sex: Male
  Weight: 43.63 kg

DRUGS (2)
  1. PEDIAPRED [Suspect]
     Indication: MULTIPLE ALLERGIES
     Dates: start: 19950101, end: 20030101
  2. ALBUTEROL [Suspect]
     Indication: MULTIPLE ALLERGIES
     Dates: start: 19950101, end: 20030101

REACTIONS (1)
  - OSTEONECROSIS [None]
